FAERS Safety Report 10015944 (Version 1)
Quarter: 2014Q1

REPORT INFORMATION
  Report Type: Spontaneous
  Country: PL (occurrence: PL)
  Receive Date: 20140317
  Receipt Date: 20140317
  Transmission Date: 20141002
  Serious: Yes (Death, Hospitalization)
  Sender: FDA-Public Use
  Company Number: PL-BAXTER-2014BAX012487

PATIENT
  Age: 76 Year
  Sex: Female

DRUGS (1)
  1. DIANEAL PD4 (GLUKOZA 2,27%) ZESTAW DO DIALIZY OTRZEWNOWEJ [Suspect]
     Indication: PERITONEAL DIALYSIS
     Route: 033
     Dates: end: 20140311

REACTIONS (2)
  - Death [Fatal]
  - Pneumonia [Unknown]
